FAERS Safety Report 6504507-2 (Version None)
Quarter: 2009Q4

REPORT INFORMATION
  Report Type: 
  Country: None (occurrence: None)
  Receive Date: 20091215
  Receipt Date: 20091210
  Transmission Date: 20100525
  Serious: Yes (Hospitalization)
  Sender: FDA-Public Use
  Company Number: TPA2009A04142

PATIENT
  Age: 32 Year
  Sex: Female

DRUGS (1)
  1. KAPIDEX [Suspect]
     Indication: DRUG USE FOR UNKNOWN INDICATION
     Dosage: 60 MG, 1 IN 1 D, PER ORAL
     Route: 048

REACTIONS (1)
  - IDIOPATHIC THROMBOCYTOPENIC PURPURA [None]
